FAERS Safety Report 5688095-9 (Version None)
Quarter: 2008Q1

REPORT INFORMATION
  Report Type: 
  Country: None (occurrence: None)
  Receive Date: 20080327
  Receipt Date: 20080312
  Transmission Date: 20080703
  Serious: Yes (Life-Threatening, Hospitalization)
  Sender: FDA-Public Use
  Company Number: TRP_01099_2008

PATIENT
  Age: 51 Year
  Sex: Male
  Weight: 85.2762 kg

DRUGS (9)
  1. RIBAPAK/RIBAVIRIN/THREE RIVERS PHARMA (TRP) [Suspect]
     Indication: HEPATITIS C
     Dosage: (600 MG BID ORAL)
     Route: 048
     Dates: start: 20070929, end: 20071019
  2. RIBAPAK/RIBAVIRIN/THREE RIVERS PHARMA (TRP) [Suspect]
     Indication: HEPATITIS C
     Dosage: (600 MG BID ORAL)
     Route: 048
     Dates: start: 20071001, end: 20071025
  3. PEG-INTRON [Suspect]
     Indication: HEPATITIS C
     Dosage: (150 UG 1X/WEEK SUBCUTANEOUS)
     Route: 058
     Dates: start: 20070929, end: 20071019
  4. PEG-INTRON [Suspect]
     Indication: HEPATITIS C
     Dosage: (150 UG 1X/WEEK SUBCUTANEOUS)
     Route: 058
     Dates: start: 20071001, end: 20071025
  5. LEXAPRO [Concomitant]
  6. HYDROCHLOROTHIAZIDE [Concomitant]
  7. LOTREL [Concomitant]
  8. COLCHICINE [Concomitant]
  9. AMBIEN [Concomitant]

REACTIONS (14)
  - ANAEMIA [None]
  - ASPARTATE AMINOTRANSFERASE INCREASED [None]
  - BLOOD BILIRUBIN INCREASED [None]
  - BLOOD CALCIUM DECREASED [None]
  - BLOOD CREATINE INCREASED [None]
  - BLOOD GLUCOSE INCREASED [None]
  - BLOOD UREA INCREASED [None]
  - BLOOD URIC ACID INCREASED [None]
  - DIZZINESS [None]
  - FATIGUE [None]
  - HYPONATRAEMIA [None]
  - NAUSEA [None]
  - RED BLOOD CELL COUNT DECREASED [None]
  - WHITE BLOOD CELL COUNT DECREASED [None]
